FAERS Safety Report 15770153 (Version 2)
Quarter: 2018Q4

REPORT INFORMATION
  Report Type: Spontaneous
  Country: US (occurrence: US)
  Receive Date: 20181228
  Receipt Date: 20181231
  Transmission Date: 20190205
  Serious: No
  Sender: FDA-Public Use
  Company Number: US-PFIZER INC-2018532429

PATIENT
  Age: 64 Year

DRUGS (1)
  1. LYRICA [Suspect]
     Active Substance: PREGABALIN
     Dosage: 200 MG, UNK
     Dates: start: 201805, end: 201810

REACTIONS (2)
  - Pain [Unknown]
  - Movement disorder [Unknown]

NARRATIVE: CASE EVENT DATE: 2018
